FAERS Safety Report 5414742-2 (Version None)
Quarter: 2007Q3

REPORT INFORMATION
  Report Type: 
  Country: None (occurrence: None)
  Receive Date: 20070813
  Receipt Date: 20070803
  Transmission Date: 20080115
  Serious: Yes (Other)
  Sender: FDA-Public Use
  Company Number: 07H-163-0312932

PATIENT
  Age: 73 Year

DRUGS (5)
  1. MANNITOL [Suspect]
     Indication: BLOOD BRAIN BARRIER DEFECT
     Dosage: 2 DAYS ONCE MONTHLY, INTRA-ARTERIAL
     Route: 013
  2. METHOTREXATE [Suspect]
     Indication: CENTRAL NERVOUS SYSTEM LYMPHOMA
     Dosage: 5000 MG/M2, 1 IN 1 M, INTRA-ARTERIAL
     Route: 013
  3. CYCLOPHOSPHAMIDE [Concomitant]
  4. ETOPOSIDE PHOSPHATE (ETOPOSIDE PHOSPHATE) [Concomitant]
  5. CYTARABINE [Concomitant]

REACTIONS (1)
  - MACULOPATHY [None]
